FAERS Safety Report 12970676 (Version 3)
Quarter: 2019Q4

REPORT INFORMATION
  Report Type: Spontaneous
  Country: DE (occurrence: DE)
  Receive Date: 20161123
  Receipt Date: 20191216
  Transmission Date: 20200122
  Serious: Yes (Hospitalization, Other)
  Sender: FDA-Public Use
  Company Number: DE-MYLANLABS-2016M1051237

PATIENT
  Age: 46 Year
  Sex: Male

DRUGS (11)
  1. CLOZAPINE. [Suspect]
     Active Substance: CLOZAPINE
     Dosage: 50 MG, QD
     Route: 048
     Dates: start: 20160713, end: 20160722
  2. HALDOL [Concomitant]
     Active Substance: HALOPERIDOL
     Dosage: 2.5 MILLIGRAM, QD
     Dates: start: 20160705, end: 20160707
  3. CLOZAPINE. [Suspect]
     Active Substance: CLOZAPINE
     Dosage: 100 MG, QD
     Route: 048
     Dates: start: 20160706, end: 20160712
  4. DIAZEPAM. [Concomitant]
     Active Substance: DIAZEPAM
     Indication: PRODUCT USED FOR UNKNOWN INDICATION
     Dosage: 30 MG, QD
     Route: 048
     Dates: start: 20160627, end: 20160704
  5. HALDOL [Concomitant]
     Active Substance: HALOPERIDOL
     Indication: PRODUCT USED FOR UNKNOWN INDICATION
     Dosage: 10 MG, QD
     Route: 048
     Dates: start: 20160627, end: 20160704
  6. CLOZAPINE. [Suspect]
     Active Substance: CLOZAPINE
     Indication: PRODUCT USED FOR UNKNOWN INDICATION
     Dosage: 25 MG, QD
     Route: 048
     Dates: start: 20160630, end: 20160701
  7. DIAZEPAM. [Concomitant]
     Active Substance: DIAZEPAM
     Dosage: 20 MG, QD
     Route: 048
     Dates: start: 20160705
  8. DIAZEPAM. [Concomitant]
     Active Substance: DIAZEPAM
     Dosage: 15 MG, QD
     Route: 048
     Dates: start: 20160706, end: 20160707
  9. CLOZAPINE. [Suspect]
     Active Substance: CLOZAPINE
     Dosage: 50 MG, QD
     Route: 048
     Dates: start: 20160702, end: 20160703
  10. CLOZAPINE. [Suspect]
     Active Substance: CLOZAPINE
     Dosage: 75 MG, QD
     Route: 048
     Dates: start: 20160704, end: 20160705
  11. HALDOL [Concomitant]
     Active Substance: HALOPERIDOL
     Dosage: 2.5 MG, QD
     Route: 048
     Dates: start: 20160705, end: 20160807

REACTIONS (5)
  - Pancreatitis [Recovered/Resolved]
  - Gastrointestinal disorder [Recovered/Resolved]
  - Diabetes mellitus [Recovering/Resolving]
  - Eosinophilia [Unknown]
  - Overweight [Unknown]

NARRATIVE: CASE EVENT DATE: 2016
